FAERS Safety Report 5450692-3 (Version None)
Quarter: 2007Q3

REPORT INFORMATION
  Report Type: 
  Country: None (occurrence: None)
  Receive Date: 20070910
  Receipt Date: 20070830
  Transmission Date: 20080115
  Serious: Yes (Other)
  Sender: FDA-Public Use
  Company Number: 2007325235

PATIENT
  Age: 64 Year
  Sex: Male
  Weight: 102.1 kg

DRUGS (7)
  1. ROGAINE 5 [Suspect]
     Indication: ALOPECIA
     Dosage: A LITTLE BIT TWICE DAILY (2 IN 1 D), TOPICAL
     Route: 061
     Dates: start: 20070601, end: 20070601
  2. SYNTHROID [Concomitant]
  3. COUMADIN [Concomitant]
  4. UROXATRAL [Concomitant]
  5. LIPITOR [Concomitant]
  6. CORDIODORON (HYOSCYAMUS NIGER HERB DRY EXTRACT, ONOPORDUM ACANTHIUM FL [Concomitant]
  7. AMIODARONE HCL [Concomitant]

REACTIONS (3)
  - ARRHYTHMIA [None]
  - PHARMACEUTICAL PRODUCT COMPLAINT [None]
  - POLLAKIURIA [None]
